FAERS Safety Report 20720243 (Version 1)
Quarter: 2022Q2

REPORT INFORMATION
  Report Type: Report from Study
  Country: US (occurrence: US)
  Receive Date: 20220418
  Receipt Date: 20220418
  Transmission Date: 20220721
  Serious: No
  Sender: FDA-Public Use
  Company Number: US-NOVARTISTESTPH-NVSC2022US086006

PATIENT
  Sex: Female

DRUGS (1)
  1. ENTRESTO [Suspect]
     Active Substance: SACUBITRIL\VALSARTAN
     Indication: Product used for unknown indication
     Dosage: 2.5 DOSAGE FORM (1 TABLET IN AM AND 1 AND HALF TABLET IN PM)
     Route: 048
     Dates: start: 202203

REACTIONS (1)
  - Wrong technique in product usage process [Unknown]
